FAERS Safety Report 17365331 (Version 1)
Quarter: 2020Q1

REPORT INFORMATION
  Report Type: Spontaneous
  Country: FR (occurrence: FR)
  Receive Date: 20200204
  Receipt Date: 20200204
  Transmission Date: 20200409
  Serious: Yes (Hospitalization, Other)
  Sender: FDA-Public Use
  Company Number: FR-ACCORD-164708

PATIENT
  Age: 65 Year
  Sex: Male
  Weight: 63 kg

DRUGS (4)
  1. ZENTIVA CALCIUM FOLINATE [Suspect]
     Active Substance: LEUCOVORIN CALCIUM
     Indication: ADENOCARCINOMA GASTRIC
     Dosage: 15TH INFUSION (11 FLOT, 4 FOLFOX)
     Route: 041
     Dates: start: 201712, end: 20191105
  2. OXALIPLATIN ACCORD [Suspect]
     Active Substance: OXALIPLATIN
     Indication: ADENOCARCINOMA GASTRIC
     Dosage: 15 CYCLES (4 FOLFOX, 11 FLOTS)
     Route: 041
     Dates: start: 201712, end: 20191105
  3. DOCETAXEL ACCORD [Suspect]
     Active Substance: DOCETAXEL
     Indication: ADENOCARCINOMA GASTRIC
     Dosage: 11 CYCLES (FLOT PROTOCOL)
     Route: 041
     Dates: start: 201712, end: 20191105
  4. FLUOROURACIL ACCORD [Concomitant]
     Active Substance: FLUOROURACIL

REACTIONS (5)
  - Interstitial lung disease [Recovered/Resolved]
  - Erythema [Recovered/Resolved]
  - Hypotension [Recovered/Resolved]
  - Off label use [Unknown]
  - Type I hypersensitivity [Recovered/Resolved]

NARRATIVE: CASE EVENT DATE: 20191021
